FAERS Safety Report 5914101-X (Version None)
Quarter: 2008Q4

REPORT INFORMATION
  Report Type: 
  Country: None (occurrence: None)
  Receive Date: 20081009
  Receipt Date: 20080930
  Transmission Date: 20090506
  Serious: Yes (Other)
  Sender: FDA-Public Use
  Company Number: CA-SANOFI-SYNTHELABO-A01200812236

PATIENT
  Age: 32 Year
  Sex: Male

DRUGS (2)
  1. FLUOROURACIL [Suspect]
     Indication: COLON CANCER
     Dosage: UNK
     Route: 041
  2. ELOXATIN [Suspect]
     Indication: COLON CANCER
     Dosage: UNK
     Route: 041

REACTIONS (3)
  - CATARACT [None]
  - INTRAOCULAR PRESSURE INCREASED [None]
  - VISUAL IMPAIRMENT [None]
